FAERS Safety Report 11044897 (Version 1)
Quarter: 2015Q2

REPORT INFORMATION
  Report Type: Spontaneous
  Country: US (occurrence: US)
  Receive Date: 20150417
  Receipt Date: 20150417
  Transmission Date: 20150821
  Serious: Yes (Hospitalization, Other)
  Sender: FDA-Public Use
  Company Number: US-GLAXOSMITHKLINE-A0890734A

PATIENT
  Age: 77 Year
  Sex: Male
  Weight: 81 kg

DRUGS (18)
  1. SYNTHROID [Concomitant]
     Active Substance: LEVOTHYROXINE SODIUM
  2. PLAVIX [Concomitant]
     Active Substance: CLOPIDOGREL BISULFATE
     Dates: start: 201002
  3. IMDUR [Concomitant]
     Active Substance: ISOSORBIDE MONONITRATE
  4. KEPPRA [Concomitant]
     Active Substance: LEVETIRACETAM
  5. TRAZODONE [Concomitant]
     Active Substance: TRAZODONE HYDROCHLORIDE
  6. CHLORAMBUCIL [Suspect]
     Active Substance: CHLORAMBUCIL
     Indication: CHRONIC LYMPHOCYTIC LEUKAEMIA
     Dosage: 4 MG, TID 5 TIMES PER MONTH
     Route: 048
     Dates: start: 20100906, end: 20101115
  7. PREDNISONE. [Suspect]
     Active Substance: PREDNISONE
     Indication: CHRONIC LYMPHOCYTIC LEUKAEMIA
     Dosage: 80 MG, QD FOR 5 DAYS EVERY 28 DAYS
     Route: 048
     Dates: start: 20100906, end: 20101208
  8. ASPIRIN. [Concomitant]
     Active Substance: ASPIRIN
     Dates: start: 201002
  9. ZYLOPRIM [Concomitant]
     Active Substance: ALLOPURINOL
  10. FIBERCON [Concomitant]
     Active Substance: CALCIUM POLYCARBOPHIL
  11. SENOKOT [Concomitant]
     Active Substance: SENNOSIDES
  12. LASIX [Concomitant]
     Active Substance: FUROSEMIDE
  13. FLOMAX [Concomitant]
     Active Substance: TAMSULOSIN HYDROCHLORIDE
  14. LIPITOR [Concomitant]
     Active Substance: ATORVASTATIN CALCIUM
  15. PROTONIX [Concomitant]
     Active Substance: PANTOPRAZOLE SODIUM
  16. FERROUS SULFATE [Concomitant]
     Active Substance: FERROUS SULFATE\FERROUS SULFATE, DRIED
  17. LOPRESSOR [Concomitant]
     Active Substance: METOPROLOL TARTRATE
  18. PROVENTIL [Concomitant]
     Active Substance: ALBUTEROL

REACTIONS (17)
  - Acute myocardial infarction [Recovered/Resolved]
  - Echocardiogram abnormal [Unknown]
  - Systolic dysfunction [Unknown]
  - Myocardial infarction [Unknown]
  - Pneumonia aspiration [Unknown]
  - Troponin increased [Unknown]
  - Interstitial lung disease [Unknown]
  - Chest pain [Unknown]
  - Bundle branch block left [Unknown]
  - Dyspnoea [Unknown]
  - Ischaemic cardiomyopathy [Unknown]
  - Chest discomfort [Unknown]
  - Cardiac failure congestive [Unknown]
  - Electrocardiogram abnormal [Unknown]
  - Dysphagia [Unknown]
  - Pleural effusion [Unknown]
  - Aspiration [Unknown]

NARRATIVE: CASE EVENT DATE: 20101004
